FAERS Safety Report 9840400 (Version 3)
Quarter: 2014Q1

REPORT INFORMATION
  Report Type: Spontaneous
  Country: JP (occurrence: JP)
  Receive Date: 20140124
  Receipt Date: 20140221
  Transmission Date: 20141002
  Serious: Yes (Hospitalization)
  Sender: FDA-Public Use
  Company Number: JP-SA-2013SA135819

PATIENT
  Age: 51 Year
  Sex: Female

DRUGS (9)
  1. ELPLAT [Suspect]
     Indication: COLON CANCER
     Dosage: TOTAL 20 CYCLES
     Route: 041
  2. ELPLAT [Suspect]
     Indication: COLON CANCER
     Route: 041
     Dates: start: 20071128
  3. LEVOFOLINATE [Concomitant]
     Indication: COLON CANCER
     Dosage: INJECTION
     Route: 042
  4. LEVOFOLINATE [Concomitant]
     Indication: COLON CANCER
     Dosage: INJECTION
     Route: 042
     Dates: start: 20071128
  5. 5-FU [Concomitant]
     Indication: COLON CANCER
     Dosage: BOLUS
  6. 5-FU [Concomitant]
     Indication: COLON CANCER
     Dosage: CONTINUOUS INFUSION
  7. 5-FU [Concomitant]
     Indication: COLON CANCER
     Dosage: BOLUS
     Dates: start: 20071128
  8. 5-FU [Concomitant]
     Indication: COLON CANCER
     Dosage: CONTINUOUS INFUSION
     Dates: start: 20071128
  9. HEPARIN [Concomitant]

REACTIONS (2)
  - Thrombocytopenia [Recovering/Resolving]
  - Splenomegaly [Unknown]
